FAERS Safety Report 19945089 (Version 1)
Quarter: 2021Q4

REPORT INFORMATION
  Report Type: Spontaneous
  Country: US (occurrence: US)
  Receive Date: 20211011
  Receipt Date: 20211011
  Transmission Date: 20220303
  Serious: Yes (Hospitalization)
  Sender: FDA-Public Use
  Company Number: US-ROCHE-2930495

PATIENT
  Sex: Male

DRUGS (6)
  1. OCREVUS [Suspect]
     Active Substance: OCRELIZUMAB
     Indication: Relapsing-remitting multiple sclerosis
     Route: 042
     Dates: start: 20210323
  2. VITAMIN D [Concomitant]
     Active Substance: VITAMIN D NOS
  3. ZYRTEC (UNITED STATES) [Concomitant]
  4. INSULIN NOS [Concomitant]
     Active Substance: INSULIN NOS
  5. MEVACOR [Concomitant]
     Active Substance: LOVASTATIN
  6. ALTACE [Concomitant]
     Active Substance: RAMIPRIL

REACTIONS (1)
  - COVID-19 [Unknown]
